FAERS Safety Report 5919237-5 (Version None)
Quarter: 2008Q4

REPORT INFORMATION
  Report Type: 
  Country: None (occurrence: None)
  Receive Date: 20081014
  Receipt Date: 20081014
  Transmission Date: 20090506
  Serious: Yes (Other)
  Sender: FDA-Public Use
  Company Number: None

PATIENT
  Sex: Male

DRUGS (1)
  1. DIVALPROEX SODIUM [Suspect]
     Indication: IMPULSE-CONTROL DISORDER
     Dosage: 300 MG BID PO COUPLE OF MONTHS
     Route: 048
     Dates: start: 20080701, end: 20080929

REACTIONS (3)
  - ANTICONVULSANT DRUG LEVEL ABNORMAL [None]
  - DRUG LEVEL CHANGED [None]
  - PRODUCT QUALITY ISSUE [None]
